FAERS Safety Report 8501726 (Version 2)
Quarter: 2015Q4

REPORT INFORMATION
  Report Type: Report from Study
  Country: US (occurrence: US)
  Receive Date: 20120410
  Receipt Date: 20151021
  Transmission Date: 20160305
  Serious: Yes (Hospitalization)
  Sender: FDA-Public Use
  Company Number: US-ROCHE-1057733

PATIENT
  Sex: Female
  Weight: 80 kg

DRUGS (26)
  1. PEPCID [Concomitant]
     Active Substance: FAMOTIDINE
     Route: 048
  2. XOPENEX [Concomitant]
     Active Substance: LEVALBUTEROL HYDROCHLORIDE
  3. ALBUTEROL HFA [Concomitant]
     Active Substance: ALBUTEROL SULFATE
  4. SOLU-MEDROL [Concomitant]
     Active Substance: METHYLPREDNISOLONE SODIUM SUCCINATE
     Route: 042
  5. ZYRTEC [Concomitant]
     Active Substance: CETIRIZINE HYDROCHLORIDE
     Route: 048
  6. GABAPENTIN. [Concomitant]
     Active Substance: GABAPENTIN
  7. OMNARIS [Concomitant]
     Active Substance: CICLESONIDE
     Dosage: 1-2 SPRAY IN EACH NOSTRIL
     Route: 045
  8. PREDNISONE. [Suspect]
     Active Substance: PREDNISONE
     Dosage: 40MG AT NIGHT AND 20 MG AT MORNING
     Route: 048
  9. DOXEPIN HCL [Concomitant]
     Active Substance: DOXEPIN HYDROCHLORIDE
     Route: 048
  10. XOLAIR [Suspect]
     Active Substance: OMALIZUMAB
     Indication: RHINITIS ALLERGIC
  11. EPINEPHRINE. [Concomitant]
     Active Substance: EPINEPHRINE
  12. EPIPEN [Concomitant]
     Active Substance: EPINEPHRINE
     Route: 065
  13. IMITREX [Concomitant]
     Active Substance: SUMATRIPTAN\SUMATRIPTAN SUCCINATE
  14. ALLEGRA [Concomitant]
     Active Substance: FEXOFENADINE HYDROCHLORIDE
     Route: 065
  15. VOLTAREN [Concomitant]
     Active Substance: DICLOFENAC SODIUM
  16. FOSAMAX [Concomitant]
     Active Substance: ALENDRONATE SODIUM
     Route: 065
  17. DOXEPIN HCL [Concomitant]
     Active Substance: DOXEPIN HYDROCHLORIDE
     Dosage: 3 CAP ONCE A DAY
     Route: 048
  18. ADVAIR HFA [Concomitant]
     Active Substance: FLUTICASONE PROPIONATE\SALMETEROL XINAFOATE
  19. OPTIVAR [Concomitant]
     Active Substance: AZELASTINE HYDROCHLORIDE
  20. XOLAIR [Suspect]
     Active Substance: OMALIZUMAB
     Indication: ASTHMA
     Route: 058
  21. PREDNISONE. [Suspect]
     Active Substance: PREDNISONE
     Indication: PRODUCT USED FOR UNKNOWN INDICATION
     Route: 048
  22. CYCLOSPORIN [Concomitant]
     Active Substance: CYCLOSPORINE
     Route: 048
  23. DIPHENHYDRAMINE HYDROCHLORIDE. [Concomitant]
     Active Substance: DIPHENHYDRAMINE HYDROCHLORIDE
     Dosage: 50MG/ML
     Route: 065
     Dates: start: 20111208
  24. PATADAY [Concomitant]
     Active Substance: OLOPATADINE HYDROCHLORIDE
  25. SINGULAIR [Concomitant]
     Active Substance: MONTELUKAST SODIUM
     Route: 065
  26. PATANASE [Concomitant]
     Active Substance: OLOPATADINE HYDROCHLORIDE
     Route: 045

REACTIONS (20)
  - Lip swelling [Unknown]
  - Dyspepsia [Unknown]
  - Paranasal sinus discomfort [Unknown]
  - Throat irritation [Unknown]
  - Anaphylactic reaction [Unknown]
  - Eye pruritus [Unknown]
  - Dry skin [Unknown]
  - Urticaria [Unknown]
  - Asthma [Unknown]
  - Pruritus [Unknown]
  - Oral candidiasis [Unknown]
  - Sinus headache [Unknown]
  - Epistaxis [Unknown]
  - Dry mouth [Unknown]
  - Snoring [Unknown]
  - Feeling abnormal [Unknown]
  - Tinnitus [Unknown]
  - Nausea [Unknown]
  - Vomiting [Unknown]
  - Productive cough [Unknown]
